FAERS Safety Report 6986513-7 (Version None)
Quarter: 2010Q3

REPORT INFORMATION
  Report Type: 
  Country: None (occurrence: None)
  Receive Date: 20100915
  Receipt Date: 20090706
  Transmission Date: 20110219
  Serious: No
  Sender: FDA-Public Use
  Company Number: US-WYE-H10054009

PATIENT
  Sex: Female

DRUGS (5)
  1. PRISTIQ [Suspect]
     Indication: BIPOLAR DISORDER
     Route: 048
     Dates: start: 20090501
  2. LITHIUM CARBONATE [Concomitant]
  3. DEPAKOTE [Concomitant]
  4. TRAZODONE HCL [Concomitant]
  5. CLONAZEPAM [Concomitant]

REACTIONS (2)
  - DECREASED APPETITE [None]
  - ENURESIS [None]
